FAERS Safety Report 19819226 (Version 1)
Quarter: 2021Q3

REPORT INFORMATION
  Report Type: Other
  Country: TW (occurrence: TW)
  Receive Date: 20210913
  Receipt Date: 20210913
  Transmission Date: 20211014
  Serious: Yes (Hospitalization, Other)
  Sender: FDA-Public Use
  Company Number: TW-LAURUS-001114

PATIENT
  Age: 74 Year
  Sex: Female

DRUGS (8)
  1. AZITHROMYCIN ANHYDROUS. [Suspect]
     Active Substance: AZITHROMYCIN ANHYDROUS
     Indication: PYREXIA
  2. OSELTAMIVIR [Suspect]
     Active Substance: OSELTAMIVIR
     Indication: COVID-19
  3. HYDROXYCHLOROQUINE [Suspect]
     Active Substance: HYDROXYCHLOROQUINE
     Indication: COVID-19
  4. LOPINAVIR W/RITONAVIR [Suspect]
     Active Substance: LOPINAVIR\RITONAVIR
     Indication: COVID-19
  5. CISATRACURIUM. [Suspect]
     Active Substance: CISATRACURIUM
     Indication: PRODUCT USED FOR UNKNOWN INDICATION
     Dosage: MEAN DAILY DOSE OF 96?192 MG/DAY
  6. CEFTRIAXONE. [Suspect]
     Active Substance: CEFTRIAXONE
     Indication: COVID-19
  7. CEFEPIME [Suspect]
     Active Substance: CEFEPIME HYDROCHLORIDE
     Indication: PYREXIA
  8. NITRIC OXIDE. [Suspect]
     Active Substance: NITRIC OXIDE
     Indication: MECHANICAL VENTILATION

REACTIONS (6)
  - Rhabdomyolysis [Recovered/Resolved]
  - Acute respiratory distress syndrome [Recovered/Resolved]
  - Cytokine storm [Recovered/Resolved]
  - Condition aggravated [Recovered/Resolved]
  - Hypotension [Unknown]
  - Off label use [Unknown]
